FAERS Safety Report 14021200 (Version 1)
Quarter: 2017Q3

REPORT INFORMATION
  Report Type: Spontaneous
  Country: US (occurrence: US)
  Receive Date: 20170928
  Receipt Date: 20170928
  Transmission Date: 20171128
  Serious: Yes (Hospitalization)
  Sender: FDA-Public Use
  Company Number: US-ROCHE-1004989

PATIENT
  Sex: Female

DRUGS (1)
  1. RITUXAN [Suspect]
     Active Substance: RITUXIMAB
     Indication: RHEUMATOID ARTHRITIS
     Route: 065

REACTIONS (8)
  - Blood potassium decreased [Unknown]
  - Headache [Unknown]
  - Infusion related reaction [Unknown]
  - White blood cell count increased [Unknown]
  - Syncope [Unknown]
  - Palpitations [Unknown]
  - Flushing [Unknown]
  - Nausea [Unknown]
